FAERS Safety Report 9280732 (Version 4)
Quarter: 2014Q1

REPORT INFORMATION
  Report Type: Spontaneous
  Country: US (occurrence: US)
  Receive Date: 20130509
  Receipt Date: 20140205
  Transmission Date: 20141002
  Serious: No
  Sender: FDA-Public Use
  Company Number: US-PFIZER INC-2013143755

PATIENT
  Age: 80 Year
  Sex: Male
  Weight: 96.6 kg

DRUGS (6)
  1. NEURONTIN [Suspect]
     Indication: NEURALGIA
     Dosage: 300 MG, 3X/DAY
     Route: 048
     Dates: start: 201302, end: 201302
  2. NEURONTIN [Suspect]
     Indication: SPINAL PAIN
     Dosage: 900 MG, 3X/DAY (3 CAPSULES OF GABAPENTIN 300MG THREE TIMES A DAY)
     Route: 048
     Dates: start: 201302, end: 2013
  3. NEURONTIN [Suspect]
     Indication: BACK PAIN
     Dosage: 300 MG, 3X/DAY
     Route: 048
     Dates: start: 2013, end: 201305
  4. FISH OIL [Concomitant]
     Dosage: UNK
  5. DIOVAN [Concomitant]
     Indication: HYPERTENSION
     Dosage: 80 MG, UNK
  6. HYTRIN [Concomitant]
     Indication: PROSTATOMEGALY
     Dosage: UNK

REACTIONS (4)
  - Off label use [Unknown]
  - Drug ineffective for unapproved indication [Unknown]
  - Feeling abnormal [Unknown]
  - Drug intolerance [Unknown]
